FAERS Safety Report 10309906 (Version 1)
Quarter: 2014Q3

REPORT INFORMATION
  Report Type: Spontaneous
  Country: IE (occurrence: IE)
  Receive Date: 20140717
  Receipt Date: 20140717
  Transmission Date: 20150326
  Serious: Yes (Death)
  Sender: FDA-Public Use
  Company Number: IE-AMGEN INC.-IRLSP2014052689

PATIENT
  Sex: Male

DRUGS (1)
  1. NEULASTA [Suspect]
     Active Substance: PEGFILGRASTIM
     Indication: LYMPHOMA
     Dosage: 6MG/0.6ML, EVERY OTHER WEEK
     Route: 058
     Dates: start: 20140612

REACTIONS (1)
  - Death [Fatal]

NARRATIVE: CASE EVENT DATE: 201407
